FAERS Safety Report 7906050-2 (Version None)
Quarter: 2011Q4

REPORT INFORMATION
  Report Type: 
  Country: None (occurrence: None)
  Receive Date: 20111110
  Receipt Date: 20111110
  Transmission Date: 20120403
  Serious: Yes (Other)
  Sender: FDA-Public Use
  Company Number: None

PATIENT
  Sex: Female
  Weight: 83.007 kg

DRUGS (1)
  1. CYMBALTA [Suspect]
     Indication: HEADACHE
     Dosage: 60 MG
     Route: 048
     Dates: start: 20080125, end: 20110801

REACTIONS (3)
  - MUSCULOSKELETAL STIFFNESS [None]
  - TENDON RUPTURE [None]
  - TENDON INJURY [None]
